FAERS Safety Report 14623490 (Version 2)
Quarter: 2018Q1

REPORT INFORMATION
  Report Type: Spontaneous
  Country: FR (occurrence: FR)
  Receive Date: 20180312
  Receipt Date: 20180330
  Transmission Date: 20180509
  Serious: Yes (Death)
  Sender: FDA-Public Use
  Company Number: FR-AUROBINDO-AUR-APL-2018-013210

PATIENT
  Age: 49 Year
  Sex: Male
  Weight: 90 kg

DRUGS (11)
  1. PROPOFOL. [Suspect]
     Active Substance: PROPOFOL
     Indication: SEDATION
     Dosage: UNK
  2. KETAMINE [Suspect]
     Active Substance: KETAMINE
     Indication: SEDATION
     Dosage: UNK
  3. OSELTAMIVIR [Concomitant]
     Active Substance: OSELTAMIVIR
     Indication: PRODUCT USED FOR UNKNOWN INDICATION
     Dosage: 75 MILLIGRAM, TWO TIMES A DAY
     Route: 048
     Dates: start: 201712
  4. ACICLOVIR [Suspect]
     Active Substance: ACYCLOVIR
     Dosage: UNK ()
     Route: 065
  5. ZANAMIVIR [Suspect]
     Active Substance: ZANAMIVIR
     Indication: H1N1 INFLUENZA
     Dosage: 600 MG, BID
     Route: 042
     Dates: start: 20171230, end: 20180103
  6. PANTOPRAZOLE [Suspect]
     Active Substance: PANTOPRAZOLE
     Indication: PRODUCT USED FOR UNKNOWN INDICATION
     Dosage: UNK
  7. LINEZOLID. [Concomitant]
     Active Substance: LINEZOLID
     Indication: PRODUCT USED FOR UNKNOWN INDICATION
     Dosage: ()
  8. MEROPENEM. [Concomitant]
     Active Substance: MEROPENEM
     Indication: PRODUCT USED FOR UNKNOWN INDICATION
     Dosage: ()
  9. OSELTAMIVIR [Concomitant]
     Active Substance: OSELTAMIVIR
     Indication: PRODUCT USED FOR UNKNOWN INDICATION
  10. MEROPENEM. [Concomitant]
     Active Substance: MEROPENEM
     Indication: PRODUCT USED FOR UNKNOWN INDICATION
  11. ACICLOVIR [Suspect]
     Active Substance: ACYCLOVIR
     Indication: ORAL HERPES
     Dosage: UNK

REACTIONS (3)
  - Cerebrovascular accident [Fatal]
  - Cholestasis [Fatal]
  - Hepatic failure [Fatal]

NARRATIVE: CASE EVENT DATE: 20180101
